FAERS Safety Report 20781979 (Version 1)
Quarter: 2022Q2

REPORT INFORMATION
  Report Type: Report from Study
  Country: FR (occurrence: FR)
  Receive Date: 20220504
  Receipt Date: 20220504
  Transmission Date: 20220720
  Serious: Yes (Hospitalization, Other)
  Sender: FDA-Public Use
  Company Number: FR-BRISTOL-MYERS SQUIBB COMPANY-2022-023443

PATIENT
  Age: 84 Year
  Sex: Male
  Weight: 60 kg

DRUGS (6)
  1. LENALIDOMIDE [Suspect]
     Active Substance: LENALIDOMIDE
     Indication: Plasma cell myeloma
     Route: 048
  2. LENALIDOMIDE [Suspect]
     Active Substance: LENALIDOMIDE
     Dosage: CYCLE-66, MEDKIT: 189473
     Route: 048
     Dates: start: 20220301
  3. DEXAMETHASONE [Suspect]
     Active Substance: DEXAMETHASONE
     Indication: Plasma cell myeloma
  4. DEXAMETHASONE [Suspect]
     Active Substance: DEXAMETHASONE
     Dosage: 2.8571 MG
     Route: 048
     Dates: start: 20220301
  5. DARATUMUMAB [Suspect]
     Active Substance: DARATUMUMAB
     Indication: Plasma cell myeloma
  6. DARATUMUMAB [Suspect]
     Active Substance: DARATUMUMAB
     Dosage: CYCLE-66, MED KIT NO: 840753
     Route: 058
     Dates: start: 20220301

REACTIONS (3)
  - Hypothyroidism [Recovered/Resolved]
  - SARS-CoV-2 test positive [Unknown]
  - Fall [Recovered/Resolved]

NARRATIVE: CASE EVENT DATE: 20220301
